FAERS Safety Report 4371712-3 (Version None)
Quarter: 2004Q2

REPORT INFORMATION
  Report Type: 
  Country: None (occurrence: None)
  Receive Date: 20040604
  Receipt Date: 20040604
  Transmission Date: 20050107
  Serious: Yes (Hospitalization)
  Sender: FDA-Public Use
  Company Number: None

PATIENT
  Age: 58 Year
  Sex: Male
  Weight: 133.9 kg

DRUGS (10)
  1. INTEGRILIN [Suspect]
     Indication: ANTIPLATELET THERAPY
     Dosage: 2 (11.3 ML BOLUSES) 20 ML/HR IV
     Route: 042
     Dates: start: 20040511, end: 20040512
  2. FENTANYL [Concomitant]
  3. MIDAZOLAM HCL [Concomitant]
  4. NITROGLYCERIN [Concomitant]
  5. MORPHINE [Concomitant]
  6. DROPERIDOL [Concomitant]
  7. NARCAN [Concomitant]
  8. ASPIRIN [Concomitant]
  9. PLAVIX [Concomitant]
  10. PEPCID [Concomitant]

REACTIONS (4)
  - BLOODY DISCHARGE [None]
  - CORONARY ARTERY STENOSIS [None]
  - CORONARY OSTIAL STENOSIS [None]
  - POST PROCEDURAL HAEMORRHAGE [None]
